FAERS Safety Report 19839062 (Version 1)
Quarter: 2021Q3

REPORT INFORMATION
  Report Type: Spontaneous
  Country: US (occurrence: US)
  Receive Date: 20210915
  Receipt Date: 20210915
  Transmission Date: 20211014
  Serious: No
  Sender: FDA-Public Use
  Company Number: None

PATIENT
  Age: 43 Year
  Sex: Female

DRUGS (2)
  1. FLUOXETINE [Suspect]
     Active Substance: FLUOXETINE HYDROCHLORIDE
  2. SERTRALINE [Suspect]
     Active Substance: SERTRALINE HYDROCHLORIDE

REACTIONS (4)
  - Abdominal discomfort [None]
  - Therapy non-responder [None]
  - Abdominal pain [None]
  - Nausea [None]
